FAERS Safety Report 10346989 (Version 1)
Quarter: 2014Q3

REPORT INFORMATION
  Report Type: Spontaneous
  Country: US (occurrence: None)
  Receive Date: 20140725
  Receipt Date: 20140725
  Transmission Date: 20150326
  Serious: Yes (Other)
  Sender: FDA-Public Use
  Company Number: None

PATIENT

DRUGS (1)
  1. ALBA BOTANICA NATURAL VERY EMOLLIENT SUNSCREEN SPORT SPRAY SPF40 [Suspect]
     Active Substance: AVOBENZONE\HOMOSALATE\OCTINOXATE\OCTISALATE\OCTOCRYLENE
     Indication: PROPHYLAXIS AGAINST SOLAR RADIATION
     Dates: start: 20140627, end: 20140724

REACTIONS (3)
  - Hypersensitivity [None]
  - Application site burn [None]
  - Expired product administered [None]

NARRATIVE: CASE EVENT DATE: 20140723
